FAERS Safety Report 7152332-4 (Version None)
Quarter: 2010Q4

REPORT INFORMATION
  Report Type: 
  Country: None (occurrence: None)
  Receive Date: 20101126
  Receipt Date: 20101118
  Transmission Date: 20110411
  Serious: Yes (Death)
  Sender: FDA-Public Use
  Company Number: MC201000289

PATIENT
  Age: 76 Year
  Sex: Female

DRUGS (12)
  1. ANGIOMAX [Suspect]
     Indication: ACUTE MYOCARDIAL INFARCTION
     Dosage: 144.4 MG, INTRAVENOUS
     Route: 042
     Dates: start: 20100924, end: 20100924
  2. AGGRASTAT [Suspect]
     Indication: ACUTE MYOCARDIAL INFARCTION
     Dosage: 191 MG, INTRAVENOUS
     Route: 042
     Dates: start: 20100924, end: 20100924
  3. FLECTADOL (ACETYLSALICYLATE LYSINE) [Suspect]
     Indication: ACUTE MYOCARDIAL INFARCTION
     Dosage: 300 MG, INTRAVENOUS
     Route: 042
     Dates: start: 20100924, end: 20100924
  4. OMEPRAZOLE [Concomitant]
  5. SIMVASTATIN [Concomitant]
  6. ALLOPURINOL [Concomitant]
  7. AMIODAR (AMIODARONE HYDROCHLORIDE) [Concomitant]
  8. CARDIRENE (ACETYLSALICYLATE LYSINE) [Concomitant]
  9. PLAQUENIL [Concomitant]
  10. DELTA-CORTEF [Concomitant]
  11. RAMIPRIL [Concomitant]
  12. FERROGRAD (FERROUS SULFATE EXSICCATED) [Concomitant]

REACTIONS (3)
  - CARDIOGENIC SHOCK [None]
  - CONDITION AGGRAVATED [None]
  - RESPIRATORY TRACT HAEMORRHAGE [None]
